FAERS Safety Report 4824446-2 (Version None)
Quarter: 2005Q4

REPORT INFORMATION
  Report Type: 
  Country: None (occurrence: None)
  Receive Date: 20051108
  Receipt Date: 20051025
  Transmission Date: 20060501
  Serious: Yes (Other)
  Sender: FDA-Public Use
  Company Number: SP00499

PATIENT
  Age: 46 Year
  Sex: Female
  Weight: 74.8435 kg

DRUGS (2)
  1. COLAZAL [Suspect]
     Indication: COLITIS ULCERATIVE
     Dosage: 2.25G/TID,ORAL
     Route: 048
     Dates: start: 20050101
  2. XANAX XR [Concomitant]

REACTIONS (2)
  - ANXIETY [None]
  - NEUROPATHY [None]
